FAERS Safety Report 6738101-5 (Version None)
Quarter: 2010Q2

REPORT INFORMATION
  Report Type: 
  Country: None (occurrence: None)
  Receive Date: 20100524
  Receipt Date: 20100503
  Transmission Date: 20101027
  Serious: Yes (Other)
  Sender: FDA-Public Use
  Company Number: US-AMGEN-KDL385333

PATIENT
  Sex: Male
  Weight: 74.7 kg

DRUGS (4)
  1. NPLATE [Suspect]
     Indication: IDIOPATHIC THROMBOCYTOPENIC PURPURA
     Dates: start: 20090301
  2. NPLATE [Suspect]
     Dates: start: 20100222
  3. RITUXAN [Concomitant]
     Dates: start: 20100201
  4. ATENOLOL [Concomitant]
     Route: 048
     Dates: start: 20100101

REACTIONS (16)
  - ASTHENIA [None]
  - BLOOD PRESSURE INCREASED [None]
  - DYSPNOEA EXERTIONAL [None]
  - FATIGUE [None]
  - FEELING ABNORMAL [None]
  - HEADACHE [None]
  - HEART RATE INCREASED [None]
  - MALAISE [None]
  - MUSCULAR WEAKNESS [None]
  - OEDEMA PERIPHERAL [None]
  - PALPITATIONS [None]
  - PETECHIAE [None]
  - PLATELET COUNT DECREASED [None]
  - RASH PRURITIC [None]
  - SKIN INFECTION [None]
  - URTICARIA [None]
